FAERS Safety Report 4864106-5 (Version None)
Quarter: 2005Q4

REPORT INFORMATION
  Report Type: 
  Country: None (occurrence: None)
  Receive Date: 20051219
  Receipt Date: 20051207
  Transmission Date: 20060501
  Serious: Yes (Hospitalization, Other)
  Sender: FDA-Public Use
  Company Number: HQWYE930809DEC05

PATIENT
  Age: 18 Month
  Sex: Male
  Weight: 7.77 kg

DRUGS (1)
  1. ADVIL [Suspect]
     Indication: ACCIDENTAL EXPOSURE
     Dosage: ORAL
     Route: 048
     Dates: start: 20051121, end: 20051121

REACTIONS (6)
  - ACCIDENTAL DRUG INTAKE BY CHILD [None]
  - ACCIDENTAL OVERDOSE [None]
  - BLOOD UREA INCREASED [None]
  - DEHYDRATION [None]
  - ELECTROLYTE IMBALANCE [None]
  - VOMITING [None]
